FAERS Safety Report 4663316-X (Version None)
Quarter: 2005Q2

REPORT INFORMATION
  Report Type: 
  Country: None (occurrence: None)
  Receive Date: 20050513
  Receipt Date: 20050502
  Transmission Date: 20051028
  Serious: Yes (Hospitalization)
  Sender: FDA-Public Use
  Company Number: 2005053595

PATIENT
  Age: 47 Year
  Sex: Female

DRUGS (8)
  1. CABERGOLINE [Suspect]
     Indication: PARKINSON'S DISEASE
     Dosage: 4 MG (4 MG, DAILY), ORAL
     Route: 048
     Dates: start: 20050203, end: 20050303
  2. CABERGOLINE [Suspect]
     Indication: RESTLESS LEGS SYNDROME
     Dosage: 4 MG (4 MG, DAILY), ORAL
     Route: 048
     Dates: start: 20050203, end: 20050303
  3. CITALOPRAM HYDROBROMIDE [Concomitant]
  4. LAMOTRIGINE [Concomitant]
  5. PRIMIDONE [Concomitant]
  6. DOMPERIDONE (DOMPERIDONE) [Concomitant]
  7. VALORON N (NALOXONE HYDROCHLORIDE, TILDINE HYDROCHLORIDE) [Concomitant]
  8. MIRTAZAPINE [Concomitant]

REACTIONS (3)
  - CONJUNCTIVAL HAEMORRHAGE [None]
  - CORNEAL BLEEDING [None]
  - HEADACHE [None]
